FAERS Safety Report 5619262-8 (Version None)
Quarter: 2008Q1

REPORT INFORMATION
  Report Type: 
  Country: None (occurrence: None)
  Receive Date: 20080205
  Receipt Date: 20080128
  Transmission Date: 20080703
  Serious: Yes (Hospitalization)
  Sender: FDA-Public Use
  Company Number: 062-C5013-07070279

PATIENT
  Age: 75 Year
  Sex: Male
  Weight: 70 kg

DRUGS (6)
  1. CC-5013 (LENALIDOMIDE) (CAPSULES) [Suspect]
     Indication: MULTIPLE MYELOMA
     Dosage: 25 MG, ORAL
     Route: 048
     Dates: start: 20070629, end: 20070705
  2. DEXAMETHASONE TAB [Suspect]
     Indication: MULTIPLE MYELOMA
     Dosage: 40 MG, ORAL
     Route: 048
     Dates: start: 20070629, end: 20070705
  3. ACETYLSALICYLIC ACID SRT [Concomitant]
  4. BACTRIM [Concomitant]
  5. FOLSEN (FOLIC ACID) [Concomitant]
  6. ALLOPURINOL [Concomitant]

REACTIONS (8)
  - AGITATION [None]
  - ATAXIA [None]
  - CONFUSIONAL STATE [None]
  - FALL [None]
  - GAIT DISTURBANCE [None]
  - HYPOKINESIA [None]
  - NERVOUSNESS [None]
  - SLEEP DISORDER [None]
